FAERS Safety Report 8394117 (Version 2)
Quarter: 2014Q1

REPORT INFORMATION
  Report Type: Report from Study
  Country: MX (occurrence: MX)
  Receive Date: 20120207
  Receipt Date: 20140206
  Transmission Date: 20141002
  Serious: Yes (Death, Other)
  Sender: FDA-Public Use
  Company Number: PHHY2012MX009167

PATIENT
  Age: 32 Year
  Sex: Male

DRUGS (3)
  1. TRILEPTAL [Suspect]
     Indication: EPILEPSY
     Dosage: 300 MG, UNK
     Dates: start: 201108
  2. KEPPRA [Concomitant]
     Indication: EPILEPSY
     Dosage: 3 DF, DAILY
     Dates: start: 201108
  3. TRILEPTAL [Suspect]
     Indication: EPILEPSY
     Dosage: 2 UKN, DAILY (6 G/100 ML)
     Dates: start: 20110403

REACTIONS (2)
  - Cardiac arrest [Fatal]
  - Convulsion [Unknown]
